FAERS Safety Report 14512271 (Version 2)
Quarter: 2018Q1

REPORT INFORMATION
  Report Type: Spontaneous
  Country: US (occurrence: US)
  Receive Date: 20180209
  Receipt Date: 20180309
  Transmission Date: 20180509
  Serious: Yes (Hospitalization, Other)
  Sender: FDA-Public Use
  Company Number: US-SAOL THERAPEUTICS-2018SAO00167

PATIENT
  Age: 54 Year
  Sex: Male
  Weight: 122.45 kg

DRUGS (2)
  1. BACLOFEN. [Suspect]
     Active Substance: BACLOFEN
     Indication: CEREBROVASCULAR ACCIDENT
  2. BACLOFEN. [Suspect]
     Active Substance: BACLOFEN
     Indication: MUSCLE SPASTICITY
     Route: 037

REACTIONS (11)
  - Fall [Unknown]
  - Pain [Recovering/Resolving]
  - Limb discomfort [Recovered/Resolved]
  - Ankle fracture [Unknown]
  - Spinal pain [Unknown]
  - Hypotonia [Unknown]
  - Unevaluable event [Unknown]
  - Swelling [Recovering/Resolving]
  - Cardiac flutter [Recovered/Resolved]
  - Overdose [Unknown]
  - Musculoskeletal stiffness [Unknown]

NARRATIVE: CASE EVENT DATE: 2015
